FAERS Safety Report 5289631-7 (Version None)
Quarter: 2007Q2

REPORT INFORMATION
  Report Type: 
  Country: None (occurrence: None)
  Receive Date: 20070406
  Receipt Date: 20070328
  Transmission Date: 20071010
  Serious: Yes (Other)
  Sender: FDA-Public Use
  Company Number: 2007GB00679

PATIENT
  Sex: Female

DRUGS (2)
  1. LIGNOCAINE [Suspect]
     Indication: SKIN LACERATION
     Route: 065
  2. LIGNOCAINE [Suspect]
     Route: 065

REACTIONS (3)
  - DIPLEGIA [None]
  - DRUG INEFFECTIVE [None]
  - SENSORY LOSS [None]
